FAERS Safety Report 5009116-2 (Version None)
Quarter: 2006Q2

REPORT INFORMATION
  Report Type: 
  Country: None (occurrence: None)
  Receive Date: 20060516
  Receipt Date: 20060504
  Transmission Date: 20061013
  Serious: Yes (Hospitalization)
  Sender: FDA-Public Use
  Company Number: HQWYE183204MAY06

PATIENT
  Age: 11 Year
  Sex: Male

DRUGS (9)
  1. CELLCEPT [Suspect]
     Indication: PROPHYLAXIS AGAINST TRANSPLANT REJECTION
     Dosage: SEE IMAGE
     Route: 048
     Dates: start: 20041201, end: 20051020
  2. CELLCEPT [Suspect]
     Indication: PROPHYLAXIS AGAINST TRANSPLANT REJECTION
     Dosage: SEE IMAGE
     Route: 048
     Dates: start: 20051021, end: 20060115
  3. CELLCEPT [Suspect]
     Indication: PROPHYLAXIS AGAINST TRANSPLANT REJECTION
     Dosage: SEE IMAGE
     Route: 048
     Dates: start: 20060116
  4. PREDNISONE [Concomitant]
  5. TACROLIMUS [Concomitant]
  6. CALCITRIOL [Concomitant]
  7. DOCUSATE SODIUM [Concomitant]
  8. ENALAPRIL [Concomitant]
  9. FOLIC ACID [Concomitant]

REACTIONS (5)
  - BLOOD CREATININE INCREASED [None]
  - COMPLICATIONS OF TRANSPLANTED KIDNEY [None]
  - DEHYDRATION [None]
  - GASTROENTERITIS [None]
  - RENAL IMPAIRMENT [None]
